FAERS Safety Report 25845200 (Version 1)
Quarter: 2025Q3

REPORT INFORMATION
  Report Type: Spontaneous
  Country: US (occurrence: US)
  Receive Date: 20250925
  Receipt Date: 20250925
  Transmission Date: 20251020
  Serious: Yes (Hospitalization)
  Sender: LUOXIN AUROVITAS PHARMA(CHENGDU)
  Company Number: US-LUOXIN-LUX-2025-US-LIT-00034

PATIENT
  Age: 58 Year
  Sex: Male

DRUGS (4)
  1. ALBUTEROL SULFATE [Suspect]
     Active Substance: ALBUTEROL SULFATE
     Indication: Dyspnoea
     Route: 065
  2. IPRATROPIUM BROMIDE [Suspect]
     Active Substance: IPRATROPIUM BROMIDE
     Indication: Dyspnoea
     Route: 065
  3. FUROSEMIDE [Suspect]
     Active Substance: FUROSEMIDE
     Indication: Dyspnoea
     Route: 065
  4. ENOXAPARIN [Concomitant]
     Active Substance: ENOXAPARIN
     Indication: Deep vein thrombosis
     Route: 065

REACTIONS (1)
  - Drug ineffective [Unknown]
